FAERS Safety Report 14502482 (Version 1)
Quarter: 2018Q1

REPORT INFORMATION
  Report Type: Spontaneous
  Country: US (occurrence: US)
  Receive Date: 20180208
  Receipt Date: 20180208
  Transmission Date: 20180509
  Serious: No
  Sender: FDA-Public Use
  Company Number: US-ELI_LILLY_AND_COMPANY-US201801006099

PATIENT
  Age: 80 Year
  Sex: Female

DRUGS (2)
  1. HUMULIN 70/30 [Suspect]
     Active Substance: INSULIN HUMAN
     Indication: TYPE 2 DIABETES MELLITUS
     Dosage: 38 U, EACH MORNING, ONCE DAILY
     Route: 058
     Dates: start: 20120112
  2. HUMULIN N [Suspect]
     Active Substance: INSULIN HUMAN
     Indication: TYPE 2 DIABETES MELLITUS
     Dosage: 48 U, EACH EVENING, ONCE
     Route: 058
     Dates: start: 20120112

REACTIONS (2)
  - Blood glucose increased [Recovering/Resolving]
  - Drug dose omission [Recovering/Resolving]

NARRATIVE: CASE EVENT DATE: 20180111
